FAERS Safety Report 6945506-6 (Version None)
Quarter: 2010Q3

REPORT INFORMATION
  Report Type: 
  Country: None (occurrence: None)
  Receive Date: 20100827
  Receipt Date: 20100816
  Transmission Date: 20110219
  Serious: No
  Sender: FDA-Public Use
  Company Number: KR-JNJFOC-20100806134

PATIENT
  Sex: Female

DRUGS (4)
  1. DURAGESIC-100 [Suspect]
     Indication: PAIN MANAGEMENT
     Route: 062
  2. DURAGESIC-100 [Suspect]
     Route: 062
  3. MOTILIUM-M [Concomitant]
     Indication: ANTIEMETIC SUPPORTIVE CARE
     Dosage: 2 TABLETS THRICE A DAY
     Route: 065
  4. MOTILIUM-M [Concomitant]
     Dosage: 2 TABLETS THRICE A DAY
     Route: 065

REACTIONS (4)
  - COLD SWEAT [None]
  - DIZZINESS [None]
  - NAUSEA [None]
  - WRONG TECHNIQUE IN DRUG USAGE PROCESS [None]
